FAERS Safety Report 11374256 (Version 1)
Quarter: 2015Q3

REPORT INFORMATION
  Report Type: Spontaneous
  Country: US (occurrence: None)
  Receive Date: 20150804
  Receipt Date: 20150804
  Transmission Date: 20151125
  Serious: Yes (Other)
  Sender: FDA-Public Use
  Company Number: DK-SEPTODONT-201402220

PATIENT
  Age: 67 Year
  Sex: Female

DRUGS (9)
  1. HYDROGENT PEROXIDE (HYDROGEN PEROXIDIE) [Concomitant]
  2. DENOSUMAB [Concomitant]
     Active Substance: DENOSUMAB
     Indication: OSTEOPOROSIS
  3. CATAPRESAN (CLONDINE HYDROCHLORIDE) [Concomitant]
  4. FEMARA [Concomitant]
     Active Substance: LETROZOLE
  5. CALCIUM [Concomitant]
     Active Substance: CALCIUM
  6. VITAMIN D (VITAMIN D NOS) [Concomitant]
  7. CHLOREXIDINE (CHLOREXIDINE D-DIGLUCONATE) [Concomitant]
  8. PECISON (ECONAZOLE NITRATE) [Concomitant]
  9. SEPTANEST [Suspect]
     Active Substance: ARTICAINE HYDROCHLORIDE\EPINEPHRINE BITARTRATE
     Indication: LOCAL ANAESTHESIA
     Route: 004

REACTIONS (1)
  - Osteonecrosis of jaw [None]

NARRATIVE: CASE EVENT DATE: 20120919
